FAERS Safety Report 9259213 (Version 2)
Quarter: 2013Q2

REPORT INFORMATION
  Report Type: Spontaneous
  Country: US (occurrence: US)
  Receive Date: 20130426
  Receipt Date: 20130509
  Transmission Date: 20140414
  Serious: Yes (Hospitalization, Other)
  Sender: FDA-Public Use
  Company Number: US-BAXTER-2013BAX015088

PATIENT
  Age: 71 Year
  Sex: Male

DRUGS (4)
  1. DIANEAL LOW CALCIUM [Suspect]
     Indication: PERITONEAL DIALYSIS
     Route: 033
     Dates: start: 200908, end: 201303
  2. DIANEAL LOW CALCIUM [Suspect]
     Route: 033
     Dates: start: 201303
  3. EXTRANEAL [Suspect]
     Indication: PERITONEAL DIALYSIS
     Route: 033
     Dates: start: 200908, end: 201303
  4. EXTRANEAL [Suspect]
     Route: 033
     Dates: start: 201303

REACTIONS (2)
  - Gangrene [Recovering/Resolving]
  - Incision site infection [Recovering/Resolving]
